FAERS Safety Report 12059621 (Version 1)
Quarter: 2016Q1

REPORT INFORMATION
  Report Type: Spontaneous
  Country: US (occurrence: None)
  Receive Date: 20160209
  Receipt Date: 20160209
  Transmission Date: 20160526
  Serious: Yes (Hospitalization)
  Sender: FDA-Public Use
  Company Number: None

PATIENT
  Age: 54 Year
  Sex: Male

DRUGS (15)
  1. FERRUS SULFATE [Concomitant]
  2. JANUVIA [Concomitant]
     Active Substance: SITAGLIPTIN PHOSPHATE
  3. PEPSID [Concomitant]
  4. LOPRESSOR [Concomitant]
     Active Substance: METOPROLOL TARTRATE
  5. AMLODIPINE [Concomitant]
     Active Substance: AMLODIPINE BESYLATE
  6. PLAVIX [Concomitant]
     Active Substance: CLOPIDOGREL BISULFATE
  7. LISINOPRIL. [Concomitant]
     Active Substance: LISINOPRIL
  8. METAPROLOL [Concomitant]
     Active Substance: METOPROLOL
  9. RANIBIZUMAB 0.3 INTRAVITERAL INJECTION [Suspect]
     Active Substance: RANIBIZUMAB
     Indication: DIABETIC RETINAL OEDEMA
     Dosage: IVT
     Dates: start: 20131211
  10. GABAPENTIN. [Concomitant]
     Active Substance: GABAPENTIN
  11. ASPIRIN. [Concomitant]
     Active Substance: ASPIRIN
  12. FUROSEMIDE. [Concomitant]
     Active Substance: FUROSEMIDE
  13. CATAPRES [Concomitant]
     Active Substance: CLONIDINE HYDROCHLORIDE
  14. METFORMIN [Concomitant]
     Active Substance: METFORMIN HYDROCHLORIDE
  15. ATORVASTATIN [Concomitant]
     Active Substance: ATORVASTATIN

REACTIONS (2)
  - Vomiting [None]
  - Influenza like illness [None]

NARRATIVE: CASE EVENT DATE: 20160202
